FAERS Safety Report 10246139 (Version 1)
Quarter: 2014Q2

REPORT INFORMATION
  Report Type: Spontaneous
  Country: US (occurrence: US)
  Receive Date: 20140619
  Receipt Date: 20140619
  Transmission Date: 20141212
  Serious: Yes (Other)
  Sender: FDA-Public Use
  Company Number: US-JNJFOC-20140605391

PATIENT
  Sex: Female
  Weight: 53.52 kg

DRUGS (4)
  1. ELMIRON [Suspect]
     Indication: CYSTITIS INTERSTITIAL
     Route: 048
     Dates: start: 2014
  2. PHENAZOPYRIDINE [Concomitant]
     Indication: PAIN
     Route: 065
     Dates: start: 2013
  3. HEPARIN [Concomitant]
     Indication: CYSTITIS INTERSTITIAL
     Route: 065
  4. LIDOCAINE [Concomitant]
     Indication: CYSTITIS INTERSTITIAL
     Route: 065

REACTIONS (5)
  - Fall [Unknown]
  - Cystitis interstitial [Recovered/Resolved]
  - Urinary tract infection [Recovered/Resolved]
  - Tenosynovitis [Not Recovered/Not Resolved]
  - Incorrect dose administered [Not Recovered/Not Resolved]
